FAERS Safety Report 4363906-8 (Version None)
Quarter: 2004Q2

REPORT INFORMATION
  Report Type: 
  Country: None (occurrence: None)
  Receive Date: 20040513
  Receipt Date: 20040428
  Transmission Date: 20050107
  Serious: Yes (Other)
  Sender: FDA-Public Use
  Company Number: THYM-10131

PATIENT

DRUGS (1)
  1. THYMOGLOBULIN [Suspect]

REACTIONS (3)
  - CHILLS [None]
  - INFUSION RELATED REACTION [None]
  - RESPIRATORY FAILURE [None]
